FAERS Safety Report 6295116-1 (Version None)
Quarter: 2009Q3

REPORT INFORMATION
  Report Type: 
  Country: None (occurrence: None)
  Receive Date: 20090803
  Receipt Date: 20090729
  Transmission Date: 20100115
  Serious: Yes (Death, Other)
  Sender: FDA-Public Use
  Company Number: PHEH2008US11556

PATIENT
  Sex: Male

DRUGS (2)
  1. GLEEVEC [Suspect]
     Indication: CHRONIC MYELOID LEUKAEMIA
     Dosage: 400 MG, UNK
     Route: 048
     Dates: start: 20010105
  2. GLEEVEC [Suspect]
     Dosage: 600 MG, UNK
     Dates: start: 20040610

REACTIONS (2)
  - DIABETES MELLITUS [None]
  - ROAD TRAFFIC ACCIDENT [None]
